FAERS Safety Report 8185386-7 (Version None)
Quarter: 2012Q1

REPORT INFORMATION
  Report Type: 
  Country: None (occurrence: None)
  Receive Date: 20120305
  Receipt Date: 20120302
  Transmission Date: 20120608
  Serious: Yes (Life-Threatening, Hospitalization)
  Sender: FDA-Public Use
  Company Number: US-US-EMD SERONO, INC.-7116425

PATIENT
  Sex: Female
  Weight: 88 kg

DRUGS (5)
  1. PAIN PUMP [Concomitant]
     Indication: PAIN
  2. REBIF [Suspect]
     Indication: PRODUCT USED FOR UNKNOWN INDICATION
     Route: 058
     Dates: start: 20111020
  3. KLONOPIN [Concomitant]
     Indication: SLEEP DISORDER
  4. METHADON HCL TAB [Suspect]
     Indication: PAIN
  5. RITALIN [Suspect]
     Indication: DEPRESSED LEVEL OF CONSCIOUSNESS

REACTIONS (9)
  - VENTRICULAR TACHYCARDIA [None]
  - LOSS OF CONSCIOUSNESS [None]
  - HYPERHIDROSIS [None]
  - TREMOR [None]
  - RESPIRATORY ARREST [None]
  - COLD SWEAT [None]
  - FEELING HOT [None]
  - MUSCULOSKELETAL STIFFNESS [None]
  - MUSCLE CONTRACTURE [None]
